FAERS Safety Report 7433237-8 (Version None)
Quarter: 2011Q2

REPORT INFORMATION
  Report Type: 
  Country: None (occurrence: None)
  Receive Date: 20110415
  Receipt Date: 20110404
  Transmission Date: 20111010
  Serious: Yes (Hospitalization)
  Sender: FDA-Public Use
  Company Number: 883668

PATIENT
  Age: 72 Year
  Sex: Male

DRUGS (3)
  1. OXALIPLATIN [Suspect]
     Indication: RECTAL CANCER
  2. AVASTIN [Suspect]
     Indication: RECTAL CANCER
  3. CAPECITABINE [Suspect]
     Indication: RECTAL CANCER

REACTIONS (3)
  - RECTAL PERFORATION [None]
  - NEOPLASM PROGRESSION [None]
  - RECTAL CANCER [None]
